FAERS Safety Report 5483014-2 (Version None)
Quarter: 2007Q4

REPORT INFORMATION
  Report Type: 
  Country: None (occurrence: None)
  Receive Date: 20071011
  Receipt Date: 20071004
  Transmission Date: 20080405
  Serious: Yes (Other)
  Sender: FDA-Public Use
  Company Number: US-SHR-02/03951-USE

PATIENT
  Age: 42 Year
  Sex: Female
  Weight: 133 kg

DRUGS (8)
  1. BETASERON [Suspect]
     Indication: RELAPSING-REMITTING MULTIPLE SCLEROSIS
     Dosage: 8 MIU, EVERY 2D
     Route: 058
     Dates: start: 19990811, end: 20020101
  2. ZANAFLEX [Concomitant]
     Dates: start: 20000101
  3. BACLOFEN [Concomitant]
     Dates: start: 19990101
  4. IMITREX [Concomitant]
     Indication: MIGRAINE
     Dosage: PRN
     Dates: start: 20000101
  5. DESYREL [Concomitant]
     Dates: start: 20000101
  6. AVONEX [Suspect]
     Indication: MULTIPLE SCLEROSIS
     Dates: start: 20011201, end: 20020301
  7. PREVACID [Concomitant]
     Dates: start: 20000101
  8. EFEXOR                                  /USA/ [Concomitant]
     Dates: start: 20000101

REACTIONS (5)
  - HEADACHE [None]
  - LIP AND/OR ORAL CAVITY CANCER RECURRENT [None]
  - MULTIPLE SCLEROSIS [None]
  - POSITRON EMISSION TOMOGRAM ABNORMAL [None]
  - TONGUE NEOPLASM MALIGNANT STAGE UNSPECIFIED [None]
